FAERS Safety Report 5762330-0 (Version None)
Quarter: 2008Q2

REPORT INFORMATION
  Report Type: 
  Country: None (occurrence: None)
  Receive Date: 20080609
  Receipt Date: 20080530
  Transmission Date: 20081010
  Serious: Yes (Hospitalization, Other)
  Sender: FDA-Public Use
  Company Number: PHHY2008BR09498

PATIENT
  Age: 76 Year
  Sex: Male

DRUGS (4)
  1. FORASEQ [Suspect]
     Indication: EMPHYSEMA
     Dosage: 12/400 MCG
     Dates: start: 20060901
  2. FORASEQ [Suspect]
     Dosage: UNK
     Dates: start: 20080501
  3. UNOPROST [Concomitant]
     Dosage: UNK
     Route: 048
  4. OMEPRAZOLE [Concomitant]
     Dosage: 20 MG, QD
     Route: 048
     Dates: start: 20060901

REACTIONS (1)
  - PNEUMONIA [None]
